FAERS Safety Report 6102928-3 (Version None)
Quarter: 2009Q1

REPORT INFORMATION
  Report Type: 
  Country: None (occurrence: None)
  Receive Date: 20090303
  Receipt Date: 20090303
  Transmission Date: 20090719
  Serious: Yes (Other)
  Sender: FDA-Public Use
  Company Number: None

PATIENT
  Sex: Female

DRUGS (1)
  1. CAMPATH [Suspect]
     Dosage: 30MG
     Dates: start: 20081030, end: 20081030

REACTIONS (3)
  - BLISTER [None]
  - RASH PRURITIC [None]
  - URTICARIA [None]
